FAERS Safety Report 6083789-8 (Version None)
Quarter: 2009Q1

REPORT INFORMATION
  Report Type: 
  Country: None (occurrence: None)
  Receive Date: 20090219
  Receipt Date: 20090212
  Transmission Date: 20090719
  Serious: Yes (Other)
  Sender: FDA-Public Use
  Company Number: RO-PFIZER INC-2009157098

PATIENT

DRUGS (3)
  1. SORTIS [Suspect]
     Indication: HYPERLIPIDAEMIA
     Dosage: 40 MG, 1X/DAY
     Route: 048
     Dates: start: 20081225, end: 20090107
  2. SORTIS [Suspect]
     Dosage: 20 MG, 1X/DAY
     Route: 048
     Dates: start: 20080512, end: 20081225
  3. HERBAL PREPARATION [Concomitant]
     Dosage: UNK

REACTIONS (6)
  - BLOOD CHOLESTEROL INCREASED [None]
  - BLOOD TRIGLYCERIDES INCREASED [None]
  - LIPIDS INCREASED [None]
  - LOW DENSITY LIPOPROTEIN INCREASED [None]
  - MYALGIA [None]
  - OVERDOSE [None]
